FAERS Safety Report 13407403 (Version 1)
Quarter: 2017Q2

REPORT INFORMATION
  Report Type: Spontaneous
  Country: US (occurrence: US)
  Receive Date: 20170405
  Receipt Date: 20170405
  Transmission Date: 20170830
  Serious: Yes (Hospitalization)
  Sender: FDA-Public Use
  Company Number: US-IMPAX LABORATORIES, INC-2017-IPXL-00806

PATIENT
  Age: 32 Year
  Sex: Male

DRUGS (1)
  1. BUPROPION XL [Suspect]
     Active Substance: BUPROPION
     Indication: INTENTIONAL OVERDOSE
     Dosage: 300 MG; 30-90 TABLETS, SINGLE
     Route: 065

REACTIONS (6)
  - Status epilepticus [Recovered/Resolved]
  - Generalised tonic-clonic seizure [Recovered/Resolved]
  - Intentional overdose [Unknown]
  - Pupil fixed [Unknown]
  - Pneumonia aspiration [Unknown]
  - Areflexia [Recovered/Resolved]
